FAERS Safety Report 15807945 (Version 5)
Quarter: 2020Q1

REPORT INFORMATION
  Report Type: Spontaneous
  Country: CA (occurrence: CA)
  Receive Date: 20190110
  Receipt Date: 20200218
  Transmission Date: 20200409
  Serious: Yes (Other)
  Sender: FDA-Public Use
  Company Number: CA-PFIZER INC-2019006046

PATIENT
  Sex: Female
  Weight: 75.96 kg

DRUGS (15)
  1. LIDOCAINE. [Suspect]
     Active Substance: LIDOCAINE
     Dosage: 1 DF, UNK
     Route: 065
  2. XELJANZ [Suspect]
     Active Substance: TOFACITINIB CITRATE
     Indication: RHEUMATOID ARTHRITIS
     Dosage: 5 MG, 2X/DAY
     Route: 048
  3. ORENCIA [Suspect]
     Active Substance: ABATACEPT
     Dosage: 125 MG, WEEKLY
     Route: 058
  4. METHOTREXATE SODIUM. [Concomitant]
     Active Substance: METHOTREXATE SODIUM
     Dosage: 15 MG, WEEKLY
     Route: 058
  5. METHOTREXATE SODIUM. [Concomitant]
     Active Substance: METHOTREXATE SODIUM
     Dosage: 25 MG, WEEKLY
     Route: 058
  6. PREDNISONE. [Concomitant]
     Active Substance: PREDNISONE
     Dosage: 10 MILLIGRAM, QD
     Route: 065
  7. METHYLPREDNISOLONE. [Suspect]
     Active Substance: METHYLPREDNISOLONE
     Dosage: 1 DF, UNK
     Route: 065
  8. ENBREL [Suspect]
     Active Substance: ETANERCEPT
     Dosage: UNK
     Route: 065
  9. METHOTREXATE SODIUM. [Concomitant]
     Active Substance: METHOTREXATE SODIUM
     Dosage: UNK
     Route: 058
  10. HUMIRA [Concomitant]
     Active Substance: ADALIMUMAB
     Dosage: UNK
     Route: 065
  11. ENBREL [Suspect]
     Active Substance: ETANERCEPT
     Dosage: 50 MG, WEEKLY
     Route: 058
  12. ORENCIA [Suspect]
     Active Substance: ABATACEPT
     Dosage: 750 MG, MONTHLY ( 1 EVERY 4 WEEKS)
     Route: 042
  13. METHOTREXATE SODIUM. [Concomitant]
     Active Substance: METHOTREXATE SODIUM
     Indication: RHEUMATOID ARTHRITIS
     Dosage: 10 MG, WEEKLY
     Route: 058
  14. ENBREL [Suspect]
     Active Substance: ETANERCEPT
     Dosage: 50 MG, WEEKLY
     Route: 058
  15. ENBREL [Suspect]
     Active Substance: ETANERCEPT
     Dosage: 50 MG, WEEKLY
     Route: 058

REACTIONS (18)
  - Dyspnoea [Unknown]
  - Fatigue [Unknown]
  - Amnesia [Unknown]
  - Arthralgia [Unknown]
  - Headache [Unknown]
  - Off label use [Unknown]
  - Myalgia [Unknown]
  - Drug ineffective [Unknown]
  - Nausea [Unknown]
  - Confusional state [Unknown]
  - Hyperhidrosis [Unknown]
  - Lupus-like syndrome [Unknown]
  - Treatment failure [Unknown]
  - Chest pain [Unknown]
  - Gastrointestinal disorder [Unknown]
  - Pleurisy [Unknown]
  - Rash [Unknown]
  - Rheumatoid arthritis [Unknown]
